FAERS Safety Report 5485745-7 (Version None)
Quarter: 2007Q4

REPORT INFORMATION
  Report Type: 
  Country: None (occurrence: None)
  Receive Date: 20071015
  Receipt Date: 20071009
  Transmission Date: 20080405
  Serious: Yes (Death, Hospitalization)
  Sender: FDA-Public Use
  Company Number: US-MERCK-0710USA02595

PATIENT
  Age: 50 Year
  Sex: Female

DRUGS (2)
  1. INVANZ [Suspect]
     Indication: CELLULITIS
     Route: 041
  2. [THERAPY UNSPECIFIED] [Concomitant]
     Route: 065

REACTIONS (2)
  - DEATH [None]
  - DISSEMINATED INTRAVASCULAR COAGULATION [None]
